FAERS Safety Report 6032286-4 (Version None)
Quarter: 2009Q1

REPORT INFORMATION
  Report Type: 
  Country: None (occurrence: None)
  Receive Date: 20090107
  Receipt Date: 20081224
  Transmission Date: 20090719
  Serious: Yes (Other)
  Sender: FDA-Public Use
  Company Number: CHPA2008US23457

PATIENT
  Sex: Male

DRUGS (1)
  1. EXCREDIN UNKNOWN (NCH) (UNKNOWN) TABLET [Suspect]
     Indication: HEADACHE
     Dosage: ORAL
     Route: 048

REACTIONS (1)
  - POLYP [None]
